FAERS Safety Report 25507198 (Version 7)
Quarter: 2025Q3

REPORT INFORMATION
  Report Type: Report from Study
  Country: US (occurrence: US)
  Receive Date: 20250703
  Receipt Date: 20250805
  Transmission Date: 20251021
  Serious: Yes (Other)
  Sender: NOVARTIS
  Company Number: US-002147023-NVSC2025US102390

PATIENT
  Age: 77 Year
  Sex: Female

DRUGS (9)
  1. LEQVIO [Suspect]
     Active Substance: INCLISIRAN SODIUM
     Indication: Type IIa hyperlipidaemia
     Route: 042
     Dates: start: 20250623
  2. LEQVIO [Suspect]
     Active Substance: INCLISIRAN SODIUM
     Indication: Arteriosclerosis coronary artery
  3. LEQVIO [Suspect]
     Active Substance: INCLISIRAN SODIUM
     Indication: Carotid artery occlusion
  4. LEQVIO [Suspect]
     Active Substance: INCLISIRAN SODIUM
     Indication: Carotid artery stenosis
  5. LEQVIO [Suspect]
     Active Substance: INCLISIRAN SODIUM
     Indication: Health assessment questionnaire score
  6. LEQVIO [Suspect]
     Active Substance: INCLISIRAN SODIUM
     Indication: Lipoprotein (a) increased
  7. LEQVIO [Suspect]
     Active Substance: INCLISIRAN SODIUM
     Indication: Obstructive sleep apnoea syndrome
  8. LEQVIO [Suspect]
     Active Substance: INCLISIRAN SODIUM
     Indication: Myocardial ischaemia
  9. TYLENOL [Concomitant]
     Active Substance: ACETAMINOPHEN
     Indication: Product used for unknown indication
     Route: 065

REACTIONS (8)
  - Myalgia [Recovered/Resolved]
  - Vomiting [Recovered/Resolved]
  - Dizziness [Recovered/Resolved]
  - Feeling abnormal [Not Recovered/Not Resolved]
  - Fatigue [Not Recovered/Not Resolved]
  - Myalgia [Not Recovered/Not Resolved]
  - Pain [Not Recovered/Not Resolved]
  - Arthralgia [Not Recovered/Not Resolved]

NARRATIVE: CASE EVENT DATE: 20250623
